FAERS Safety Report 15076923 (Version 2)
Quarter: 2018Q3

REPORT INFORMATION
  Report Type: Spontaneous
  Country: MQ (occurrence: FR)
  Receive Date: 20180627
  Receipt Date: 20180705
  Transmission Date: 20181010
  Serious: Yes (Other)
  Sender: FDA-Public Use
  Company Number: MQ-NOVOPROD-607052

PATIENT
  Sex: Female

DRUGS (1)
  1. FIASP [Suspect]
     Active Substance: INSULIN ASPART
     Indication: PRODUCT USED FOR UNKNOWN INDICATION
     Dosage: UNK
     Route: 065

REACTIONS (4)
  - Muscle tightness [Recovered/Resolved]
  - Wrong technique in product usage process [Unknown]
  - Aphasia [Recovered/Resolved]
  - Hypoglycaemia [Recovered/Resolved]
